FAERS Safety Report 11542109 (Version 1)
Quarter: 2015Q3

REPORT INFORMATION
  Report Type: Spontaneous
  Country: US (occurrence: US)
  Receive Date: 20150903
  Receipt Date: 20150903
  Transmission Date: 20151125
  Serious: No
  Sender: FDA-Public Use
  Company Number: US-ELI_LILLY_AND_COMPANY-US201204002555

PATIENT
  Age: 67 Year
  Sex: Female

DRUGS (4)
  1. HUMALOG [Suspect]
     Active Substance: INSULIN LISPRO
     Indication: DIABETES MELLITUS
     Dosage: 14 U, EACH MORNING
  2. HUMALOG [Suspect]
     Active Substance: INSULIN LISPRO
     Dosage: 10 U, EACH EVENING
  3. LANTUS [Concomitant]
     Active Substance: INSULIN GLARGINE
     Dosage: UNK
  4. HUMALOG [Suspect]
     Active Substance: INSULIN LISPRO
     Dosage: 8 U, OTHER

REACTIONS (2)
  - Wrong drug administered [Recovered/Resolved]
  - Incorrect dose administered [Recovered/Resolved]
